FAERS Safety Report 18979988 (Version 1)
Quarter: 2021Q1

REPORT INFORMATION
  Report Type: Report from Study
  Country: JP (occurrence: JP)
  Receive Date: 20210308
  Receipt Date: 20210308
  Transmission Date: 20210420
  Serious: Yes (Other)
  Sender: FDA-Public Use
  Company Number: JP-MYLANLABS-2021M1012928

PATIENT
  Age: 81 Year
  Sex: Male

DRUGS (2)
  1. CARBOPLATIN. [Suspect]
     Active Substance: CARBOPLATIN
     Indication: URINARY TRACT NEOPLASM
     Route: 065
  2. GEMCITABINE. [Suspect]
     Active Substance: GEMCITABINE
     Indication: URINARY TRACT NEOPLASM
     Route: 065

REACTIONS (4)
  - Neutropenia [Unknown]
  - Rash maculo-papular [Recovered/Resolved]
  - Thrombocytopenia [Unknown]
  - Off label use [Unknown]
